FAERS Safety Report 14925930 (Version 3)
Quarter: 2018Q2

REPORT INFORMATION
  Report Type: Spontaneous
  Country: FR (occurrence: FR)
  Receive Date: 20180522
  Receipt Date: 20180620
  Transmission Date: 20180711
  Serious: Yes (Other)
  Sender: FDA-Public Use
  Company Number: FR-TEVA-2018-FR-894378

PATIENT
  Age: 71 Year
  Sex: Male
  Weight: 60 kg

DRUGS (5)
  1. RANITIDINE BASE [Suspect]
     Active Substance: RANITIDINE HYDROCHLORIDE
     Indication: PROPHYLAXIS AGAINST GASTROINTESTINAL ULCER
     Dosage: .
     Route: 042
     Dates: start: 20180126, end: 20180126
  2. METHYLPREDNISOLONE. [Suspect]
     Active Substance: METHYLPREDNISOLONE
     Indication: PROPHYLAXIS
     Dosage: .
     Route: 042
     Dates: start: 20180126, end: 20180126
  3. PACLITAXEL AHCL 6 MG/ML, SOLUTION ? DILUER POUR PERFUSION [Suspect]
     Active Substance: PACLITAXEL
     Indication: OESOPHAGEAL CARCINOMA
     Route: 042
     Dates: start: 20180126, end: 20180126
  4. CETIRIZINE [Suspect]
     Active Substance: CETIRIZINE HYDROCHLORIDE
     Indication: ALLERGY PROPHYLAXIS
     Route: 048
     Dates: start: 20180126, end: 20180126
  5. ONDANSETRON [Suspect]
     Active Substance: ONDANSETRON
     Indication: PROPHYLAXIS OF NAUSEA AND VOMITING
     Dosage: .
     Route: 042
     Dates: start: 20180126, end: 20180126

REACTIONS (3)
  - Erythema [Recovered/Resolved]
  - Hypersensitivity [Recovered/Resolved]
  - Pruritus [Recovered/Resolved]

NARRATIVE: CASE EVENT DATE: 20180126
